FAERS Safety Report 6701710-3 (Version None)
Quarter: 2010Q2

REPORT INFORMATION
  Report Type: 
  Country: None (occurrence: None)
  Receive Date: 20100429
  Receipt Date: 20100419
  Transmission Date: 20101027
  Serious: Yes (Other)
  Sender: FDA-Public Use
  Company Number: PHHY2010DE23424

PATIENT

DRUGS (5)
  1. RASILEZ [Suspect]
     Dosage: 1 DF, QD
     Route: 048
  2. RASILEZ HCT [Suspect]
     Indication: HYPERTENSION
     Dosage: 1 DF, QD
     Route: 048
  3. TORASEMIDE [Concomitant]
     Indication: HYPERTENSION
  4. BYETTA [Concomitant]
     Indication: DIABETES MELLITUS
  5. METFORMIN [Concomitant]

REACTIONS (3)
  - CEREBELLAR INFARCTION [None]
  - CEREBRAL ISCHAEMIA [None]
  - DIZZINESS [None]
